FAERS Safety Report 16005538 (Version 1)
Quarter: 2019Q1

REPORT INFORMATION
  Report Type: Spontaneous
  Country: ES (occurrence: ES)
  Receive Date: 20190226
  Receipt Date: 20190226
  Transmission Date: 20190418
  Serious: Yes (Hospitalization)
  Sender: FDA-Public Use
  Company Number: PHHY2019ES041664

PATIENT
  Age: 85 Year
  Sex: Male

DRUGS (2)
  1. IPRATROPIO BROMURO [Concomitant]
     Active Substance: IPRATROPIUM BROMIDE
     Indication: INFECTIVE EXACERBATION OF CHRONIC OBSTRUCTIVE AIRWAYS DISEASE
     Dosage: UNK, Q8H
     Route: 055
     Dates: start: 20190125
  2. AMOXICILLIN+CLAVULANIC ACID [Suspect]
     Active Substance: AMOXICILLIN\CLAVULANIC ACID
     Indication: INFECTIVE EXACERBATION OF CHRONIC OBSTRUCTIVE AIRWAYS DISEASE
     Dosage: 1 G, Q8H
     Route: 042
     Dates: start: 20190125, end: 20190128

REACTIONS (2)
  - Confusional state [Recovered/Resolved]
  - Hallucination [Recovered/Resolved]

NARRATIVE: CASE EVENT DATE: 20190128
